FAERS Safety Report 13026878 (Version 1)
Quarter: 2016Q4

REPORT INFORMATION
  Report Type: Report from Study
  Country: JP (occurrence: JP)
  Receive Date: 20161214
  Receipt Date: 20161214
  Transmission Date: 20170207
  Serious: Yes (Death, Hospitalization, Other)
  Sender: FDA-Public Use
  Company Number: JP-CELGENEUS-JPN-2015033882

PATIENT
  Age: 82 Year
  Sex: Female
  Weight: 41.7 kg

DRUGS (68)
  1. DARBEPOETIN ALFA [Concomitant]
     Active Substance: DARBEPOETIN ALFA
     Dosage: 120MCG
     Route: 058
     Dates: start: 20141226
  2. MAGNESIUM OXIDE. [Concomitant]
     Active Substance: MAGNESIUM OXIDE
     Indication: PRODUCT USED FOR UNKNOWN INDICATION
     Dosage: 330MG
     Route: 048
     Dates: start: 20150318
  3. ASPIRIN. [Concomitant]
     Active Substance: ASPIRIN
     Indication: ANTICOAGULANT THERAPY
     Dosage: 100MG
     Route: 048
     Dates: start: 20121107
  4. BAKTAR [Concomitant]
     Active Substance: SULFAMETHOXAZOLE\TRIMETHOPRIM
     Dosage: 0.5 TABLET
     Route: 048
     Dates: start: 20140224
  5. LIDOCAINE. [Concomitant]
     Active Substance: LIDOCAINE
     Dosage: 1.5ML
     Route: 065
     Dates: start: 20121220, end: 20121220
  6. SODIUM FERROUS CITRATE [Concomitant]
     Active Substance: SODIUM FERROUS CITRATE
     Indication: NEPHROGENIC ANAEMIA
     Dosage: 50MG
     Route: 048
     Dates: start: 20140612, end: 20140808
  7. SODIUM FERROUS CITRATE [Concomitant]
     Active Substance: SODIUM FERROUS CITRATE
     Dosage: 50MG
     Route: 048
     Dates: start: 20141002, end: 20141020
  8. DARBEPOETIN ALFA [Concomitant]
     Active Substance: DARBEPOETIN ALFA
     Dosage: 30MCG
     Route: 058
     Dates: start: 20140710, end: 20140710
  9. DARBEPOETIN ALFA [Concomitant]
     Active Substance: DARBEPOETIN ALFA
     Dosage: 50MCG
     Route: 058
     Dates: start: 20141002, end: 20141127
  10. FERRIC OXIDE [Concomitant]
     Active Substance: FERRIC OXIDE RED
     Indication: ANAEMIA
     Dosage: 40MG
     Route: 041
     Dates: start: 20150210
  11. DENOSUMAB [Concomitant]
     Active Substance: DENOSUMAB
     Indication: BONE LESION
     Dosage: 120MG
     Route: 058
     Dates: start: 20121011, end: 20130510
  12. ALFACALCIDOL [Concomitant]
     Active Substance: ALFACALCIDOL
     Dosage: 1MCG
     Route: 048
     Dates: start: 20121031, end: 20140710
  13. SENNOSIDE [Concomitant]
     Active Substance: SENNOSIDES
     Indication: CONSTIPATION
     Dosage: 12MG
     Route: 048
     Dates: start: 20121015, end: 20141224
  14. ACETAMINOPHEN. [Concomitant]
     Active Substance: ACETAMINOPHEN
     Indication: CONTUSION
     Dosage: 400MG
     Route: 048
     Dates: start: 20121107, end: 20121214
  15. OLIVE OIL [Concomitant]
     Active Substance: OLIVE OIL
     Indication: CONSTIPATION
     Dosage: 10ML
     Route: 065
     Dates: start: 20121024, end: 20121024
  16. ETIZOLAM [Concomitant]
     Active Substance: ETIZOLAM
     Indication: INSOMNIA
     Dosage: 0.5MG
     Route: 048
     Dates: start: 20121031, end: 20140319
  17. MOMETASONE FUROATE HYDRATE [Concomitant]
     Indication: NASAL CONGESTION
     Route: 065
     Dates: start: 20121003, end: 20130807
  18. MOMETASONE FUROATE HYDRATE [Concomitant]
     Route: 065
     Dates: start: 20150129
  19. PL GRANULATED MEDICINE [Concomitant]
     Indication: UPPER RESPIRATORY TRACT INFECTION
     Dosage: 1G
     Route: 048
     Dates: start: 20121220, end: 20121226
  20. FEBUXOSTAT. [Concomitant]
     Active Substance: FEBUXOSTAT
     Dosage: 20MG
     Route: 048
     Dates: start: 20121112
  21. MIOPIN [Concomitant]
     Indication: CONJUNCTIVOCHALASIS
     Route: 047
     Dates: start: 20140123
  22. CC-5013 [Suspect]
     Active Substance: LENALIDOMIDE
     Dosage: 10MG
     Route: 048
     Dates: start: 20140220
  23. CC-5013 [Suspect]
     Active Substance: LENALIDOMIDE
     Dosage: 5MG
     Route: 048
     Dates: start: 20140515, end: 20150305
  24. ALFACALCIDOL [Concomitant]
     Active Substance: ALFACALCIDOL
     Indication: OSTEOPOROSIS
     Dosage: 0.25MCG
     Route: 048
     Dates: start: 20121012, end: 20131023
  25. CALCIUM L-ASPARTATE HYDRATE [Concomitant]
     Active Substance: ASPARTIC ACID
     Indication: OSTEOPOROSIS
     Dosage: 200MG
     Route: 048
     Dates: start: 20121012, end: 20130313
  26. ACETAMINOPHEN. [Concomitant]
     Active Substance: ACETAMINOPHEN
     Indication: SPINAL COMPRESSION FRACTURE
     Dosage: 400MG
     Route: 048
     Dates: start: 20121017, end: 20121108
  27. LIDOCAINE. [Concomitant]
     Active Substance: LIDOCAINE
     Indication: TOOTH LOSS
     Dosage: 1.8ML
     Route: 065
     Dates: start: 20121107, end: 20121107
  28. MOMETASONE FUROATE HYDRATE [Concomitant]
     Indication: NASOPHARYNGITIS
     Route: 065
     Dates: start: 20140208, end: 20140807
  29. PL GRANULATED MEDICINE [Concomitant]
     Dosage: 1G
     Route: 048
     Dates: start: 20140215, end: 20140217
  30. PL GRANULATED MEDICINE [Concomitant]
     Dosage: 1G
     Route: 048
     Dates: start: 20140403
  31. PANTETHINE [Concomitant]
     Active Substance: PANTETHINE
     Indication: CONSTIPATION
     Dosage: 100MG
     Route: 048
     Dates: start: 20121015, end: 20130813
  32. PANTETHINE [Concomitant]
     Active Substance: PANTETHINE
     Dosage: 400MG
     Route: 048
     Dates: start: 20130314, end: 20140710
  33. SODIUM HYALURONATE [Concomitant]
     Active Substance: HYALURONATE SODIUM
     Indication: CONJUNCTIVOCHALASIS
     Route: 065
     Dates: start: 20130314, end: 20130410
  34. DEXAMETHASONE. [Concomitant]
     Active Substance: DEXAMETHASONE
     Indication: OSTEONECROSIS OF JAW
     Route: 065
     Dates: start: 20150129
  35. RED BLOOD CELLS [Concomitant]
     Active Substance: HUMAN RED BLOOD CELL
     Indication: PRODUCT USED FOR UNKNOWN INDICATION
     Dosage: 2 UNITS
     Route: 041
     Dates: start: 20150309, end: 20150309
  36. LENADEX [Suspect]
     Active Substance: DEXAMETHASONE ACETATE
     Indication: PLASMA CELL MYELOMA
     Dosage: 20MG
     Route: 065
     Dates: start: 20121022, end: 20150305
  37. RHEUM PALMATUM [Concomitant]
     Indication: CONSTIPATION
     Dosage: 1G
     Route: 048
     Dates: start: 20121015, end: 20121016
  38. KETOPROFEN. [Concomitant]
     Active Substance: KETOPROFEN
     Indication: SPINAL COMPRESSION FRACTURE
     Route: 062
     Dates: start: 20121017
  39. BAKTAR [Concomitant]
     Active Substance: SULFAMETHOXAZOLE\TRIMETHOPRIM
     Indication: INFECTION PROPHYLAXIS
     Dosage: 0.5 TABLET
     Route: 048
     Dates: start: 20121017, end: 20140217
  40. INFLUENZA VACCINE [Concomitant]
     Active Substance: INFLUENZA VIRUS VACCINE
     Indication: INFLUENZA IMMUNISATION
     Dosage: 0.5ML
     Route: 058
     Dates: start: 20121122, end: 20121122
  41. BENZETHONIUM CHLORIDE [Concomitant]
     Active Substance: BENZETHONIUM CHLORIDE
     Indication: STOMATITIS
     Route: 065
     Dates: start: 20130613, end: 20140828
  42. FERROUS SULFATE HYDRATE [Concomitant]
     Indication: NEPHROGENIC ANAEMIA
     Dosage: 105MG
     Route: 048
     Dates: start: 20141226, end: 20150226
  43. CALONAL [Concomitant]
     Active Substance: ACETAMINOPHEN
     Indication: PRODUCT USED FOR UNKNOWN INDICATION
     Route: 048
     Dates: start: 20130902
  44. ASPIRIN. [Concomitant]
     Active Substance: ASPIRIN
     Indication: THROMBOSIS PROPHYLAXIS
  45. ACETAMINOPHEN. [Concomitant]
     Active Substance: ACETAMINOPHEN
     Dosage: 200MG
     Route: 048
     Dates: start: 20130302
  46. GLYCERIN. [Concomitant]
     Active Substance: GLYCERIN
     Indication: CONSTIPATION
     Dosage: 60ML
     Route: 065
     Dates: start: 20121024, end: 20121024
  47. PL GRANULATED MEDICINE [Concomitant]
     Indication: NASAL CONGESTION
     Dosage: 1G
     Route: 048
     Dates: start: 20130104, end: 20130107
  48. DEXAMETHASONE. [Concomitant]
     Active Substance: DEXAMETHASONE
     Indication: STOMATITIS
     Route: 062
     Dates: start: 20130411
  49. LEVOCABASTINE HYDROCHLORIDE [Concomitant]
     Active Substance: LEVOCABASTINE HYDROCHLORIDE
     Indication: NASAL CONGESTION
     Route: 065
     Dates: start: 20120608, end: 20140205
  50. CC-5013 [Suspect]
     Active Substance: LENALIDOMIDE
     Indication: PLASMA CELL MYELOMA
     Dosage: 15MG
     Route: 048
     Dates: start: 20121022
  51. SODIUM PICOSULFATE HYDRATE [Concomitant]
     Indication: CONSTIPATION
     Route: 048
     Dates: start: 20121015, end: 20121031
  52. PL GRANULATED MEDICINE [Concomitant]
     Indication: NASOPHARYNGITIS
     Dosage: 1G
     Route: 048
     Dates: start: 20121226, end: 20121230
  53. AMLODIPINE BESYLATE. [Concomitant]
     Active Substance: AMLODIPINE BESYLATE
     Indication: HYPERTENSION
     Dosage: 5MG
     Route: 048
     Dates: start: 20130214
  54. PANTETHINE [Concomitant]
     Active Substance: PANTETHINE
     Dosage: 200MG
     Route: 048
     Dates: start: 20130314, end: 20140712
  55. CYANOCOBALAMIN. [Concomitant]
     Active Substance: CYANOCOBALAMIN
     Indication: CONJUNCTIVOCHALASIS
     Route: 065
     Dates: start: 20130313, end: 20130420
  56. BENZETHONIUM CHLORIDE [Concomitant]
     Active Substance: BENZETHONIUM CHLORIDE
     Indication: OSTEONECROSIS OF JAW
  57. FEBUXOSTAT. [Concomitant]
     Active Substance: FEBUXOSTAT
     Indication: TUMOUR LYSIS SYNDROME
     Dosage: 40MG
     Route: 048
     Dates: start: 20121017, end: 20121111
  58. DIMEMORFAN PHOSPHATE [Concomitant]
     Active Substance: DIMEMORFAN PHOSPHATE
     Indication: COUGH
     Dosage: 10MG
     Route: 048
     Dates: start: 20131017, end: 20131018
  59. CALCIUM L-ASPARTATE HYDRATE [Concomitant]
     Active Substance: ASPARTIC ACID
     Dosage: 400MG
     Route: 048
     Dates: start: 20130314, end: 20140710
  60. RABEPRAZOLE SODIUM. [Concomitant]
     Active Substance: RABEPRAZOLE SODIUM
     Indication: GASTRITIS
     Dosage: 10MG
     Route: 048
     Dates: start: 20121017
  61. CALCIUM POLYSTYRENE SULFONATE [Concomitant]
     Active Substance: CALCIUM POLYSTYRENE SULFONATE
     Indication: HYPERKALAEMIA
     Dosage: 25G
     Route: 048
     Dates: start: 20121121, end: 20121128
  62. PANTETHINE [Concomitant]
     Active Substance: PANTETHINE
     Dosage: 100MG
     Route: 048
     Dates: start: 20150319
  63. RHEUM PALMATUM [Concomitant]
     Dosage: 1G
     Route: 048
     Dates: start: 20121017, end: 20121030
  64. RHEUM PALMATUM [Concomitant]
     Dosage: 0.5G
     Route: 048
     Dates: start: 20121031, end: 20121205
  65. PL GRANULATED MEDICINE [Concomitant]
     Dosage: 1G
     Route: 048
     Dates: start: 20130316, end: 20130323
  66. DIMEMORFAN PHOSPHATE [Concomitant]
     Active Substance: DIMEMORFAN PHOSPHATE
     Indication: NASOPHARYNGITIS
     Dosage: 10MG
     Route: 048
     Dates: start: 20140215, end: 20140227
  67. SODIUM FERROUS CITRATE [Concomitant]
     Active Substance: SODIUM FERROUS CITRATE
     Dosage: 50MG
     Route: 048
     Dates: start: 20141030, end: 20141226
  68. DARBEPOETIN ALFA [Concomitant]
     Active Substance: DARBEPOETIN ALFA
     Indication: NEPHROGENIC ANAEMIA
     Dosage: 30MCG
     Route: 058
     Dates: start: 20140612, end: 20140904

REACTIONS (2)
  - Gallbladder adenocarcinoma [Fatal]
  - Adenocarcinoma of colon [Not Recovered/Not Resolved]

NARRATIVE: CASE EVENT DATE: 20150313
